FAERS Safety Report 5831103-2 (Version None)
Quarter: 2008Q3

REPORT INFORMATION
  Report Type: 
  Country: None (occurrence: None)
  Receive Date: 20080801
  Receipt Date: 20080407
  Transmission Date: 20090109
  Serious: No
  Sender: FDA-Public Use
  Company Number: US-BRISTOL-MYERS SQUIBB COMPANY-14141667

PATIENT
  Age: 78 Year
  Sex: Female
  Weight: 41 kg

DRUGS (7)
  1. COUMADIN [Suspect]
     Indication: CARDIOVASCULAR EVENT PROPHYLAXIS
  2. LISINOPRIL [Concomitant]
  3. LANOXIN [Concomitant]
  4. VYTORIN [Concomitant]
  5. LEVOTHYROXINE SODIUM [Concomitant]
  6. NEXIUM [Concomitant]
  7. EVISTA [Concomitant]

REACTIONS (1)
  - CHROMATURIA [None]
